FAERS Safety Report 17872845 (Version 1)
Quarter: 2020Q2

REPORT INFORMATION
  Report Type: Spontaneous
  Country: FR (occurrence: FR)
  Receive Date: 20200608
  Receipt Date: 20200608
  Transmission Date: 20200714
  Serious: Yes (Other)
  Sender: FDA-Public Use
  Company Number: FR-MYLANLABS-2020M1054583

PATIENT
  Age: 60 Year
  Sex: Male
  Weight: 84 kg

DRUGS (2)
  1. BIOCALYPTOL                        /00094201/ [Suspect]
     Active Substance: PHOLCODINE
     Indication: COUGH
     Dosage: 3 DOSAGE FORM, QD
     Route: 048
     Dates: start: 20200213, end: 20200218
  2. ACETYLCYSTEINE MYLAN [Suspect]
     Active Substance: ACETYLCYSTEINE
     Indication: COUGH
     Dosage: UNK
     Route: 048
     Dates: start: 20200212, end: 20200217

REACTIONS (1)
  - Pneumonia aspiration [Unknown]

NARRATIVE: CASE EVENT DATE: 20200218
